FAERS Safety Report 4578549-0 (Version None)
Quarter: 2005Q1

REPORT INFORMATION
  Report Type: 
  Country: None (occurrence: None)
  Receive Date: 20050211
  Receipt Date: 20050201
  Transmission Date: 20050727
  Serious: Yes (Hospitalization)
  Sender: FDA-Public Use
  Company Number: US-GLAXOSMITHKLINE-A0543247A

PATIENT
  Age: 52 Year
  Sex: Male

DRUGS (6)
  1. COMMIT [Suspect]
     Route: 002
     Dates: start: 20020101
  2. NICORETTE [Suspect]
     Route: 002
  3. ATENOLOL [Concomitant]
  4. ZOCOR [Concomitant]
  5. PREVACID [Concomitant]
  6. GEMFIBROZIL [Concomitant]

REACTIONS (3)
  - CORONARY ARTERY STENOSIS [None]
  - DRUG ABUSER [None]
  - STOMATITIS [None]
